FAERS Safety Report 6609662-1 (Version None)
Quarter: 2010Q1

REPORT INFORMATION
  Report Type: 
  Country: None (occurrence: None)
  Receive Date: 20100216
  Receipt Date: 20091130
  Transmission Date: 20100710
  Serious: Yes (Other)
  Sender: FDA-Public Use
  Company Number: 2009FG0265

PATIENT
  Age: 51 Year
  Sex: Male
  Weight: 103.8737 kg

DRUGS (22)
  1. FENOGLIDE [Suspect]
     Indication: BLOOD TRIGLYCERIDES INCREASED
     Dosage: 120 MG, ONCE DAILY
     Dates: start: 20091013, end: 20091116
  2. NITROGLYCERIN [Concomitant]
  3. XOPENEX HFA [Concomitant]
  4. LUNESTA [Concomitant]
  5. ADVAIR DISKUS 100/50 [Concomitant]
  6. FLONASE [Concomitant]
  7. IMITREX [Concomitant]
  8. NEURONTIN [Concomitant]
  9. SPIRIVA HANIDHALER [Concomitant]
  10. ALBUTEROL SULFATE AUTOHALER [Concomitant]
  11. LISINOPRIL [Concomitant]
  12. METFORMIN HCL [Concomitant]
  13. SIMVASTATIN [Concomitant]
  14. TOPROL-XL [Concomitant]
  15. FLEXERIL [Concomitant]
  16. VALTREX [Concomitant]
  17. TESSALON [Concomitant]
  18. ALLEGRA [Concomitant]
  19. TESSALON [Concomitant]
  20. NIASPAN [Concomitant]
  21. SYNTHROID [Concomitant]
  22. VITAMIN D [Concomitant]

REACTIONS (1)
  - RENAL FAILURE ACUTE [None]
